FAERS Safety Report 5907163-7 (Version None)
Quarter: 2008Q4

REPORT INFORMATION
  Report Type: 
  Country: None (occurrence: None)
  Receive Date: 20081003
  Receipt Date: 20080926
  Transmission Date: 20090506
  Serious: Yes (Other)
  Sender: FDA-Public Use
  Company Number: JP-JNJFOC-20061105906

PATIENT
  Age: 6 Decade
  Sex: Male

DRUGS (19)
  1. RISPERDAL [Suspect]
     Route: 048
  2. RISPERDAL [Suspect]
     Indication: DRUG USE FOR UNKNOWN INDICATION
     Route: 048
  3. RISPERDAL [Suspect]
     Dosage: 0.5-2MG
     Route: 048
  4. RISPERDAL [Suspect]
     Dosage: 0.5-2MG
     Route: 048
  5. RISPERDAL [Suspect]
     Route: 048
  6. PEROSPIRONE HYDROCHLORIDE HYDRATE [Suspect]
     Indication: DRUG USE FOR UNKNOWN INDICATION
     Route: 065
  7. VEGETAMIN-A [Suspect]
     Indication: DRUG USE FOR UNKNOWN INDICATION
     Route: 065
  8. LENDORMIN [Concomitant]
     Indication: DRUG USE FOR UNKNOWN INDICATION
     Route: 048
  9. DEPAS [Concomitant]
     Indication: DRUG USE FOR UNKNOWN INDICATION
     Route: 048
  10. ROHYPNOL [Concomitant]
     Indication: DRUG USE FOR UNKNOWN INDICATION
     Route: 048
  11. DIAZEPAM [Concomitant]
     Indication: DRUG USE FOR UNKNOWN INDICATION
     Route: 048
  12. AKINETON [Concomitant]
  13. GOODMIN [Concomitant]
  14. SENNOSIDE [Concomitant]
     Route: 065
  15. LOPEMIN [Concomitant]
     Route: 048
  16. SAIREI-TO [Concomitant]
  17. DOMPERIDONE [Concomitant]
  18. CLOXAZOLAM [Concomitant]
     Route: 048
  19. ACTOS [Concomitant]
     Route: 048

REACTIONS (16)
  - BLOOD GLUCOSE INCREASED [None]
  - CONSTIPATION [None]
  - DIARRHOEA [None]
  - DIZZINESS [None]
  - DYSPEPSIA [None]
  - HUNGER [None]
  - HYPERHIDROSIS [None]
  - INSOMNIA [None]
  - NAUSEA [None]
  - PARKINSONISM [None]
  - PERIARTHRITIS [None]
  - POLLAKIURIA [None]
  - SOMNOLENCE [None]
  - SUICIDAL IDEATION [None]
  - THIRST [None]
  - VOMITING [None]
